FAERS Safety Report 10035887 (Version 1)
Quarter: 2014Q1

REPORT INFORMATION
  Report Type: Spontaneous
  Country: US (occurrence: US)
  Receive Date: 20140325
  Receipt Date: 20140325
  Transmission Date: 20141002
  Serious: Yes (Hospitalization)
  Sender: FDA-Public Use
  Company Number: US-CUBIST PHARMACEUTICAL, INC.-2014CBST000425

PATIENT
  Sex: 0

DRUGS (7)
  1. CUBICIN [Suspect]
     Indication: ENTEROCOCCAL INFECTION
     Dosage: 6 MG/KG, QD
     Route: 042
  2. CUBICIN [Suspect]
     Indication: FEBRILE NEUTROPENIA
     Dosage: 8 MG/KG, QD
     Route: 042
  3. CUBICIN [Suspect]
     Indication: OFF LABEL USE
  4. TIGECYCLINE [Concomitant]
     Indication: ENTEROCOCCAL BACTERAEMIA
     Dosage: 50 MG, BID
     Route: 042
  5. TIGECYCLINE [Concomitant]
     Indication: BACTERIAL PERICARDITIS
  6. GENTAMICIN [Concomitant]
     Indication: ENTEROCOCCAL BACTERAEMIA
     Dosage: 7 MG/KG, QD
     Route: 042
  7. GENTAMICIN [Concomitant]
     Indication: BACTERIAL PERICARDITIS

REACTIONS (2)
  - Enterococcal bacteraemia [Recovered/Resolved]
  - Bacterial pericarditis [Recovered/Resolved]
